FAERS Safety Report 25430046 (Version 1)
Quarter: 2025Q2

REPORT INFORMATION
  Report Type: Spontaneous
  Country: GB (occurrence: GB)
  Receive Date: 20250612
  Receipt Date: 20250612
  Transmission Date: 20250716
  Serious: Yes (Hospitalization, Other)
  Sender: ELI LILLY AND COMPANY
  Company Number: None

PATIENT
  Age: 26 Year
  Sex: Female
  Weight: 54 kg

DRUGS (3)
  1. MOUNJARO [Suspect]
     Active Substance: TIRZEPATIDE
     Indication: Diabetes mellitus
     Dosage: 7.5 MG, WEEKLY (1/W)
     Route: 065
     Dates: start: 20250301, end: 20250529
  2. GLYBURIDE [Concomitant]
     Active Substance: GLYBURIDE
     Indication: Diabetes mellitus
  3. ETHINYL ESTRADIOL\LEVONORGESTREL [Concomitant]
     Active Substance: ETHINYL ESTRADIOL\LEVONORGESTREL
     Indication: Product used for unknown indication

REACTIONS (2)
  - Diabetic ketoacidosis [Unknown]
  - Vomiting [Recovering/Resolving]

NARRATIVE: CASE EVENT DATE: 20250529
